FAERS Safety Report 7967132-2 (Version None)
Quarter: 2011Q4

REPORT INFORMATION
  Report Type: 
  Country: None (occurrence: None)
  Receive Date: 20111208
  Receipt Date: 20111208
  Transmission Date: 20120403
  Serious: No
  Sender: FDA-Public Use
  Company Number: None

PATIENT
  Sex: Male

DRUGS (1)
  1. INCIVEK [Suspect]
     Indication: HEPATITIS C
     Dosage: 375MG 2 TABS TID ORAL
     Route: 048
     Dates: start: 20111012, end: 20111201

REACTIONS (2)
  - RASH [None]
  - PRURITUS [None]
